FAERS Safety Report 6335136-1 (Version None)
Quarter: 2009Q3

REPORT INFORMATION
  Report Type: 
  Country: None (occurrence: None)
  Receive Date: 20090826
  Receipt Date: 20090812
  Transmission Date: 20100115
  Serious: Yes (Hospitalization)
  Sender: FDA-Public Use
  Company Number: 1-19502773

PATIENT
  Sex: Female

DRUGS (1)
  1. WARFARIN SODIUM [Suspect]
     Dosage: UNK, UNK, ORAL
     Route: 048
     Dates: start: 20090101

REACTIONS (6)
  - ABNORMAL DREAMS [None]
  - ANXIETY [None]
  - CARDIAC ARREST [None]
  - CHEST DISCOMFORT [None]
  - DYSPNOEA [None]
  - PANIC ATTACK [None]
